FAERS Safety Report 6048788-0 (Version None)
Quarter: 2009Q1

REPORT INFORMATION
  Report Type: 
  Country: None (occurrence: None)
  Receive Date: 20090123
  Receipt Date: 20090113
  Transmission Date: 20090719
  Serious: Yes (Hospitalization)
  Sender: FDA-Public Use
  Company Number: JP-MERCK-0901USA00361

PATIENT
  Age: 78 Year
  Sex: Female

DRUGS (6)
  1. FOSAMAX [Suspect]
     Indication: OSTEOPOROSIS
     Route: 048
     Dates: start: 20080919, end: 20081219
  2. COUGH, COLD, AND FLU THERAPIES (UNSPECIFIED) [Suspect]
     Indication: NASOPHARYNGITIS
     Route: 048
     Dates: start: 20081218, end: 20081219
  3. PREDNISOLONE [Suspect]
     Indication: AUTOIMMUNE HEPATITIS
     Route: 048
     Dates: start: 20080919
  4. URSO 250 [Concomitant]
     Indication: AUTOIMMUNE HEPATITIS
     Route: 048
  5. GASMOTIN [Concomitant]
     Indication: NAUSEA
     Route: 048
  6. LIVACT [Concomitant]
     Indication: AUTOIMMUNE HEPATITIS
     Route: 048

REACTIONS (1)
  - HAEMATEMESIS [None]
